FAERS Safety Report 20083151 (Version 1)
Quarter: 2021Q4

REPORT INFORMATION
  Report Type: Report from Study
  Country: IT (occurrence: IT)
  Receive Date: 20211117
  Receipt Date: 20211117
  Transmission Date: 20220303
  Serious: Yes (Death)
  Sender: FDA-Public Use
  Company Number: IT-ABBVIE-21K-083-4165582-00

PATIENT
  Age: 78 Year
  Sex: Female

DRUGS (2)
  1. CARBIDOPA\LEVODOPA [Suspect]
     Active Substance: CARBIDOPA\LEVODOPA
     Indication: Parkinson^s disease
     Dosage: TOTAL DAILY DOSE (MG): 1694; PUMP SETTING: MD: 7,5 PLUS 3; CR: 4,2 (16H); ED: 5
     Route: 050
     Dates: start: 20210309
  2. CARBIDOPA\LEVODOPA [Suspect]
     Active Substance: CARBIDOPA\LEVODOPA

REACTIONS (3)
  - General physical health deterioration [Fatal]
  - Dysphagia [Fatal]
  - Aphasia [Fatal]

NARRATIVE: CASE EVENT DATE: 20211101
